FAERS Safety Report 6279818-9 (Version None)
Quarter: 2009Q3

REPORT INFORMATION
  Report Type: 
  Country: None (occurrence: None)
  Receive Date: 20090721
  Receipt Date: 20090714
  Transmission Date: 20100115
  Serious: Yes (Life-Threatening, Hospitalization)
  Sender: FDA-Public Use
  Company Number: 2009-200701-NL

PATIENT
  Age: 59 Year
  Sex: Male

DRUGS (6)
  1. PANCURONIUM BROMIDE [Suspect]
     Indication: MUSCLE RELAXANT THERAPY
     Dosage: INTRAVENOUS (NOS)
     Route: 042
     Dates: start: 20090612, end: 20090612
  2. ROCURONIUM BROMIDE [Suspect]
     Indication: INDUCTION OF ANAESTHESIA
     Dosage: INTRAVENOUS (NOS)
     Route: 042
     Dates: start: 20090612, end: 20090612
  3. THIAMYLAL SODIUM [Concomitant]
  4. FENTANYL CITRATE [Concomitant]
  5. PROPOFOL [Concomitant]
  6. REMIFENTANIL HYDROCHLORIDE [Concomitant]

REACTIONS (1)
  - ANAPHYLACTIC SHOCK [None]
